FAERS Safety Report 6179589-0 (Version None)
Quarter: 2009Q2

REPORT INFORMATION
  Report Type: 
  Country: None (occurrence: None)
  Receive Date: 20090505
  Receipt Date: 20090423
  Transmission Date: 20091009
  Serious: Yes (Hospitalization)
  Sender: FDA-Public Use
  Company Number: US-ELI_LILLY_AND_COMPANY-US200904005397

PATIENT
  Age: 39 Year
  Sex: Male

DRUGS (3)
  1. CYMBALTA [Suspect]
     Indication: DIABETIC NEUROPATHY
     Dosage: 60 MG, DAILY (1/D)
     Route: 048
     Dates: start: 20091112
  2. GABAPENTIN [Concomitant]
  3. OTHER HYPNOTICS AND SEDATIVES [Concomitant]

REACTIONS (2)
  - PSYCHIATRIC EVALUATION [None]
  - RENAL FAILURE CHRONIC [None]
